FAERS Safety Report 18516412 (Version 1)
Quarter: 2020Q4

REPORT INFORMATION
  Report Type: Spontaneous
  Country: US (occurrence: US)
  Receive Date: 20201118
  Receipt Date: 20201118
  Transmission Date: 20210114
  Serious: No
  Sender: FDA-Public Use
  Company Number: None

PATIENT
  Age: 65 Year
  Sex: Female
  Weight: 63 kg

DRUGS (14)
  1. ST JOHNS WORT [Concomitant]
     Active Substance: ST. JOHN^S WORT
  2. ATENOLOL. [Concomitant]
     Active Substance: ATENOLOL
  3. PREDNISONE. [Concomitant]
     Active Substance: PREDNISONE
  4. FOLIC ACID. [Concomitant]
     Active Substance: FOLIC ACID
  5. BISACODYL. [Concomitant]
     Active Substance: BISACODYL
  6. LOPERAMIDE [Concomitant]
     Active Substance: LOPERAMIDE
  7. C [Concomitant]
  8. CHLORTHALIDONE. [Concomitant]
     Active Substance: CHLORTHALIDONE
  9. PANTOPRAZOLE [Concomitant]
     Active Substance: PANTOPRAZOLE
  10. MULTIVITAMIN [Concomitant]
     Active Substance: VITAMINS
  11. B2 [Concomitant]
  12. LINZESS [Suspect]
     Active Substance: LINACLOTIDE
     Indication: IRRITABLE BOWEL SYNDROME
     Dosage: ?          QUANTITY:1 CAPSULE(S);?
     Route: 048
  13. D [Concomitant]
  14. MAGNESIUM [Concomitant]
     Active Substance: MAGNESIUM

REACTIONS (8)
  - Palpitations [None]
  - Splenic artery stenosis [None]
  - Coeliac artery stenosis [None]
  - Constipation [None]
  - Ear pain [None]
  - Abdominal discomfort [None]
  - Headache [None]
  - Gastrooesophageal reflux disease [None]

NARRATIVE: CASE EVENT DATE: 20200415
